FAERS Safety Report 8287163-5 (Version None)
Quarter: 2012Q2

REPORT INFORMATION
  Report Type: 
  Country: None (occurrence: None)
  Receive Date: 20120416
  Receipt Date: 20120406
  Transmission Date: 20120825
  Serious: Yes (Hospitalization)
  Sender: FDA-Public Use
  Company Number: US-BAYER-2012-034069

PATIENT
  Age: 28 Year
  Sex: Female
  Weight: 87.075 kg

DRUGS (8)
  1. YASMIN [Suspect]
  2. OVCON-35 [Concomitant]
  3. PENICILLIN VK [Concomitant]
     Dosage: 500 MG, UNK
     Dates: start: 20051004
  4. COMPAZINE [Concomitant]
     Dosage: 5 MG, TID FOR 2 TO 3 DAYS
     Dates: start: 20051118
  5. FLAGYL [Concomitant]
     Dosage: 500 MG, UNK
     Dates: start: 20051206
  6. PROTONIX [Concomitant]
     Dosage: 40 MG, QD
     Dates: start: 20051118
  7. PROCHLORPERAZINE [Concomitant]
     Dosage: 5 MG, UNK
     Dates: start: 20051118
  8. TYLENOL (CAPLET) [Concomitant]
     Dosage: UNK
     Dates: start: 20051201

REACTIONS (1)
  - PULMONARY EMBOLISM [None]
